FAERS Safety Report 9973710 (Version 1)
Quarter: 2014Q1

REPORT INFORMATION
  Report Type: Report from Study
  Country: US (occurrence: US)
  Receive Date: 20140306
  Receipt Date: 20140306
  Transmission Date: 20141002
  Serious: Yes (Death)
  Sender: FDA-Public Use
  Company Number: PHEH2014US004425

PATIENT
  Sex: Male

DRUGS (2)
  1. MYFORTIC [Suspect]
     Dosage: UNK UKN, UNK
  2. NEORAL [Concomitant]
     Dosage: UNK UKN, UNK

REACTIONS (1)
  - Death [Fatal]
